FAERS Safety Report 6230610-0 (Version None)
Quarter: 2009Q2

REPORT INFORMATION
  Report Type: 
  Country: None (occurrence: None)
  Receive Date: 20090610
  Receipt Date: 20090605
  Transmission Date: 20091009
  Serious: No
  Sender: FDA-Public Use
  Company Number: CHPA2009US08946

PATIENT
  Age: 80 Year
  Sex: Female
  Weight: 59.9 kg

DRUGS (1)
  1. BENEFIBER W/WHEAT DEXTRIN (NCH) (WHEAT DEXTRIN (NCH) (WHEAT DEXTRIN) P [Suspect]
     Indication: BOWEL MOVEMENT IRREGULARITY
     Dosage: 10 TSP, ONCE/SINGLE, ORAL, 3 TSP, BID,  ORAL
     Route: 048
     Dates: end: 20090604

REACTIONS (5)
  - CONSTIPATION [None]
  - DRUG INEFFECTIVE [None]
  - FAECES HARD [None]
  - OVERDOSE [None]
  - POST PROCEDURAL DISCOMFORT [None]
